FAERS Safety Report 9072145 (Version 1)
Quarter: 2013Q1

REPORT INFORMATION
  Report Type: Report from Study
  Country: US (occurrence: US)
  Receive Date: 20130129
  Receipt Date: 20130129
  Transmission Date: 20140127
  Serious: No
  Sender: FDA-Public Use
  Company Number: US-ABBOTT-12P-163-0933847-00

PATIENT
  Age: 67 Year
  Sex: Female

DRUGS (2)
  1. HUMIRA 40 MG/0.8 ML PEN [Suspect]
     Indication: PSORIASIS
     Route: 058
     Dates: start: 20120502, end: 20120502
  2. HUMIRA 40 MG/0.8 ML PEN [Suspect]
     Route: 058
     Dates: start: 20120509

REACTIONS (6)
  - Toothache [Unknown]
  - Chest pain [Unknown]
  - Musculoskeletal pain [Unknown]
  - Myalgia [Unknown]
  - Rash papular [Unknown]
  - Injection site bruising [Unknown]
